FAERS Safety Report 22138720 (Version 1)
Quarter: 2023Q1

REPORT INFORMATION
  Report Type: Report from Study
  Country: US (occurrence: US)
  Receive Date: 20230327
  Receipt Date: 20230327
  Transmission Date: 20230417
  Serious: Yes (Other)
  Sender: FDA-Public Use
  Company Number: US-ABBVIE-4294470

PATIENT
  Sex: Female
  Weight: 63.502 kg

DRUGS (2)
  1. HUMIRA [Suspect]
     Active Substance: ADALIMUMAB
     Indication: Rheumatoid arthritis
     Dosage: STRENGTH: 40 MG
     Route: 058
     Dates: start: 20070626, end: 20221231
  2. HUMIRA [Suspect]
     Active Substance: ADALIMUMAB
     Dosage: CITRATE FREE, FORM STRENGTH: 40 MG
     Route: 058
     Dates: start: 20200602, end: 20230131

REACTIONS (6)
  - Osteoarthritis [Recovered/Resolved]
  - Osteoarthritis [Recovered/Resolved]
  - Therapeutic product effect decreased [Not Recovered/Not Resolved]
  - Osteoporosis [Recovering/Resolving]
  - Arthralgia [Unknown]
  - Joint swelling [Unknown]

NARRATIVE: CASE EVENT DATE: 20140101
